FAERS Safety Report 5207696-5 (Version None)
Quarter: 2007Q1

REPORT INFORMATION
  Report Type: 
  Country: None (occurrence: None)
  Receive Date: 20070112
  Receipt Date: 20070104
  Transmission Date: 20070707
  Serious: Yes (Death, Life-Threatening, Hospitalization)
  Sender: FDA-Public Use
  Company Number: BG-PFIZER INC-2007001323

PATIENT
  Sex: Male
  Weight: 85 kg

DRUGS (1)
  1. SU-011,248 [Suspect]
     Route: 048
     Dates: start: 20061201, end: 20061225

REACTIONS (6)
  - ABDOMINAL PAIN UPPER [None]
  - BLOOD CREATININE INCREASED [None]
  - COMA [None]
  - GASTROINTESTINAL ULCER [None]
  - ILEUS [None]
  - UPPER GASTROINTESTINAL HAEMORRHAGE [None]
